FAERS Safety Report 6282566-2 (Version None)
Quarter: 2009Q3

REPORT INFORMATION
  Report Type: 
  Country: None (occurrence: None)
  Receive Date: 20090724
  Receipt Date: 20090709
  Transmission Date: 20100115
  Serious: Yes (Other)
  Sender: FDA-Public Use
  Company Number: US-BAYER-200912163BCC

PATIENT
  Sex: Male
  Weight: 66 kg

DRUGS (5)
  1. MILK OF MAGNESIA TAB [Suspect]
     Indication: DRUG USE FOR UNKNOWN INDICATION
     Route: 048
  2. MILK OF MAGNESIA TAB [Suspect]
     Dosage: DRANK ABOUT 3/4 OF A 12 OUNCE BOTTLE
     Route: 048
     Dates: start: 20090709
  3. MORPHINE [Concomitant]
     Route: 065
  4. LEVAQUIN [Concomitant]
     Route: 065
  5. MEGESTROL ACETATE [Concomitant]
     Route: 065

REACTIONS (2)
  - DYSPEPSIA [None]
  - RECTAL HAEMORRHAGE [None]
